FAERS Safety Report 9454293 (Version 2)
Quarter: 2013Q3

REPORT INFORMATION
  Report Type: Spontaneous
  Country: US (occurrence: US)
  Receive Date: 20130812
  Receipt Date: 20130912
  Transmission Date: 20140515
  Serious: No
  Sender: FDA-Public Use
  Company Number: US-TEVA-424635USA

PATIENT
  Age: 32 Year
  Sex: Female
  Weight: 59.93 kg

DRUGS (1)
  1. PARAGARD 380A [Suspect]
     Indication: CONTRACEPTION
     Route: 015
     Dates: start: 20130610

REACTIONS (2)
  - Smear cervix abnormal [Not Recovered/Not Resolved]
  - Cervical dysplasia [Not Recovered/Not Resolved]
